FAERS Safety Report 9020759 (Version 1)
Quarter: 2013Q1

REPORT INFORMATION
  Report Type: Spontaneous
  Country: None (occurrence: US)
  Receive Date: 20130119
  Receipt Date: 20130119
  Transmission Date: 20140127
  Serious: No
  Sender: FDA-Public Use
  Company Number: US-ALLERGAN-1202979US

PATIENT
  Age: 64 None
  Sex: Female

DRUGS (4)
  1. BOTOX COSMETIC [Suspect]
     Indication: SKIN WRINKLING
     Dosage: 12.5 UNITS
     Route: 030
     Dates: start: 20120228, end: 20120228
  2. BOTOX COSMETIC [Suspect]
     Indication: SKIN WRINKLING
     Dosage: 7.5 UNITS
     Route: 030
     Dates: start: 20120228, end: 20120228
  3. BOTOX COSMETIC [Suspect]
     Indication: SKIN WRINKLING
     Dosage: 20 UNITS (10 EACH SIDE)
     Route: 030
     Dates: start: 20120228, end: 20120228
  4. SPIRONOLACTONE [Concomitant]
     Indication: PRODUCT USED FOR UNKNOWN INDICATION
     Dosage: UNK
     Route: 048

REACTIONS (5)
  - Abnormal sensation in eye [Unknown]
  - Headache [Recovering/Resolving]
  - Eyelid ptosis [Recovering/Resolving]
  - Vision blurred [Unknown]
  - Skin tightness [Recovering/Resolving]
